FAERS Safety Report 14859478 (Version 1)
Quarter: 2018Q2

REPORT INFORMATION
  Report Type: Spontaneous
  Country: US (occurrence: US)
  Receive Date: 20180423
  Receipt Date: 20180423
  Transmission Date: 20180711
  Serious: No
  Sender: FDA-Public Use
  Company Number: None

PATIENT
  Age: 74 Year
  Sex: Female
  Weight: 63 kg

DRUGS (15)
  1. WARFARIN [Suspect]
     Active Substance: WARFARIN
     Indication: DEEP VEIN THROMBOSIS
     Route: 048
     Dates: start: 20180119, end: 20180423
  2. VITAMIN D3 50,000 WEEKLY [Concomitant]
  3. COENZYME Q 10 120MG DAILY [Concomitant]
  4. FOLIC ACID 400MG DAILY [Concomitant]
  5. LUTEIN 6MG CAPSULE DAILY [Concomitant]
  6. METFROMIN 1000MG BID [Concomitant]
  7. VARENCLINE [Concomitant]
  8. ASPIRIN 81MG QD [Concomitant]
  9. LISINOPRIL 40MG DAILY [Concomitant]
  10. MAGNESIUM OXIDE 400MG DAILY [Concomitant]
  11. VITAMIN E 400 UNITS DAILY [Concomitant]
  12. CALCIUM CARBONATE 1250MG DAILY [Concomitant]
  13. CARVEDILOL 3.125MG BID [Concomitant]
  14. CLOBETASOL CREAM 005% TO HANDS,BACK, LEGS, TORSO [Concomitant]
  15. RIOCIGUAT 2.5MG BID [Concomitant]

REACTIONS (2)
  - Fatigue [None]
  - Pain in extremity [None]

NARRATIVE: CASE EVENT DATE: 20180119
